FAERS Safety Report 22011977 (Version 1)
Quarter: 2023Q1

REPORT INFORMATION
  Report Type: Spontaneous
  Country: CN (occurrence: CN)
  Receive Date: 20230220
  Receipt Date: 20230220
  Transmission Date: 20230418
  Serious: Yes (Other)
  Sender: FDA-Public Use
  Company Number: CN-PFIZER INC-PV202300030443

PATIENT
  Age: 75 Year
  Sex: Male
  Weight: 60 kg

DRUGS (2)
  1. ZYVOX [Suspect]
     Active Substance: LINEZOLID
     Indication: Pneumonia
     Dosage: 0.6 G, 1X/DAY
     Route: 041
     Dates: start: 20230116, end: 20230116
  2. ZYVOX [Suspect]
     Active Substance: LINEZOLID
     Indication: Pneumonia
     Dosage: 0.6 G, 1X/DAY
     Route: 048
     Dates: start: 20230117, end: 20230122

REACTIONS (2)
  - Rhabdomyolysis [Recovered/Resolved]
  - Off label use [Unknown]

NARRATIVE: CASE EVENT DATE: 20230116
